FAERS Safety Report 18353129 (Version 1)
Quarter: 2020Q4

REPORT INFORMATION
  Report Type: Spontaneous
  Country: US (occurrence: US)
  Receive Date: 20201006
  Receipt Date: 20201006
  Transmission Date: 20210114
  Serious: No
  Sender: FDA-Public Use
  Company Number: US-ALLERGAN-1939148US

PATIENT
  Age: 57 Year

DRUGS (1)
  1. LINZESS [Suspect]
     Active Substance: LINACLOTIDE
     Indication: FREQUENT BOWEL MOVEMENTS
     Dosage: 1 CAPSULE IN THE MORNING BEFORE BREAKFAST
     Route: 048
     Dates: start: 20190924, end: 20190924

REACTIONS (1)
  - Diarrhoea [Not Recovered/Not Resolved]

NARRATIVE: CASE EVENT DATE: 20190924
